FAERS Safety Report 7868982-3 (Version None)
Quarter: 2011Q4

REPORT INFORMATION
  Report Type: 
  Country: None (occurrence: None)
  Receive Date: 20111021
  Receipt Date: 20111011
  Transmission Date: 20120403
  Serious: Yes (Hospitalization)
  Sender: FDA-Public Use
  Company Number: 2011SP046308

PATIENT
  Age: 68 Year
  Sex: Male
  Weight: 50 kg

DRUGS (8)
  1. OMEPRAZOLE [Concomitant]
  2. NOXAFIL [Suspect]
     Indication: ZYGOMYCOSIS
     Dosage: 5 ML, QID, PO
     Route: 048
     Dates: start: 20110822, end: 20110905
  3. NOXAFIL [Suspect]
     Indication: SINUSITIS
     Dosage: 5 ML, QID, PO
     Route: 048
     Dates: start: 20110822, end: 20110905
  4. NOXAFIL [Suspect]
     Indication: ZYGOMYCOSIS
     Dosage: 5 ML, QID, PO
     Route: 048
     Dates: start: 20110126, end: 20110418
  5. NOXAFIL [Suspect]
     Indication: SINUSITIS
     Dosage: 5 ML, QID, PO
     Route: 048
     Dates: start: 20110126, end: 20110418
  6. LASIX [Concomitant]
  7. FBC [Concomitant]
  8. FOLIC ACID [Concomitant]

REACTIONS (1)
  - PANCYTOPENIA [None]
